FAERS Safety Report 6302994-6 (Version None)
Quarter: 2009Q3

REPORT INFORMATION
  Report Type: 
  Country: None (occurrence: None)
  Receive Date: 20090810
  Receipt Date: 20090730
  Transmission Date: 20100115
  Serious: Yes (Other)
  Sender: FDA-Public Use
  Company Number: US-JNJFOC-20090506972

PATIENT
  Sex: Female
  Weight: 65.32 kg

DRUGS (4)
  1. REMICADE [Suspect]
     Indication: CROHN'S DISEASE
     Route: 042
  2. LEXAPRO [Concomitant]
     Indication: DEPRESSION
     Dosage: STARTED AT WEEK 17
     Route: 048
  3. WELLBUTRIN [Concomitant]
  4. VITAMIN B-12 [Concomitant]
     Route: 050

REACTIONS (2)
  - DEPRESSION [None]
  - DRUG EXPOSURE DURING PREGNANCY [None]
